FAERS Safety Report 4934016-3 (Version None)
Quarter: 2006Q1

REPORT INFORMATION
  Report Type: 
  Country: None (occurrence: None)
  Receive Date: 20060303
  Receipt Date: 20060224
  Transmission Date: 20060701
  Serious: Yes (Life-Threatening, Hospitalization)
  Sender: FDA-Public Use
  Company Number: 430012M06USA

PATIENT
  Age: 56 Year
  Sex: Male
  Weight: 118.8424 kg

DRUGS (3)
  1. NOVANTRONE [Suspect]
     Indication: MULTIPLE SCLEROSIS
     Dosage: 12 MG/M2, 1 IN 3 MONTHS
     Dates: start: 20040601, end: 20050301
  2. CLADRIBINE [Suspect]
     Dates: start: 19950101, end: 19960101
  3. COPAXONE [Suspect]
     Dates: start: 20050101

REACTIONS (3)
  - LIVER FUNCTION TEST ABNORMAL [None]
  - METASTASES TO LIVER [None]
  - OESOPHAGEAL CARCINOMA [None]
